FAERS Safety Report 13452774 (Version 2)
Quarter: 2017Q2

REPORT INFORMATION
  Report Type: Spontaneous
  Country: GB (occurrence: GB)
  Receive Date: 20170418
  Receipt Date: 20170515
  Transmission Date: 20170830
  Serious: Yes (Other)
  Sender: FDA-Public Use
  Company Number: GB-TEVA-760994ROM

PATIENT
  Age: 27 Year
  Sex: Male

DRUGS (3)
  1. CISPLATIN. [Suspect]
     Active Substance: CISPLATIN
     Indication: TESTICULAR GERM CELL TUMOUR MIXED
     Route: 065
     Dates: start: 2001, end: 200106
  2. BLEOMYCIN [Suspect]
     Active Substance: BLEOMYCIN SULFATE
     Indication: TESTICULAR GERM CELL TUMOUR MIXED
     Dosage: TWO CYCLES OF BEP ADJUVANT CHEMOTHERAPY.
     Route: 065
     Dates: start: 2001, end: 200106
  3. ETOPOSIDE. [Suspect]
     Active Substance: ETOPOSIDE
     Indication: TESTICULAR GERM CELL TUMOUR MIXED
     Dosage: TWO CYCLES OF BEP ADJUVANT CHEMOTHERAPY. A CUMULATIVE DOSE OF 360 (UNIT NOT STATED)
     Route: 065
     Dates: start: 2001, end: 200106

REACTIONS (1)
  - Papillary thyroid cancer [Recovered/Resolved]

NARRATIVE: CASE EVENT DATE: 201301
